FAERS Safety Report 17824947 (Version 4)
Quarter: 2021Q3

REPORT INFORMATION
  Report Type: Spontaneous
  Country: US (occurrence: US)
  Receive Date: 20200526
  Receipt Date: 20210805
  Transmission Date: 20211014
  Serious: No
  Sender: FDA-Public Use
  Company Number: US-SA-2020SA135815

PATIENT
  Age: 60 Year
  Sex: Female

DRUGS (11)
  1. DUPIXENT [Suspect]
     Active Substance: DUPILUMAB
     Indication: NASAL POLYPS
     Dosage: 300 MG, Q3W
     Route: 058
  2. NAPROXEN. [Concomitant]
     Active Substance: NAPROXEN
     Dosage: UNK MG
  3. XYZAL [Concomitant]
     Active Substance: LEVOCETIRIZINE DIHYDROCHLORIDE
     Dosage: UNK MG
  4. DUPIXENT [Suspect]
     Active Substance: DUPILUMAB
     Indication: ASTHMA
     Dosage: 300 MG, QOW
     Route: 058
     Dates: start: 202002
  5. TYLENOL [Concomitant]
     Active Substance: ACETAMINOPHEN
     Dosage: UNK MG
  6. NAPROXEN. [Concomitant]
     Active Substance: NAPROXEN
  7. FAMOTIDINE. [Concomitant]
     Active Substance: FAMOTIDINE
  8. FAMOTIDINE. [Concomitant]
     Active Substance: FAMOTIDINE
  9. MONTELUKAST [Suspect]
     Active Substance: MONTELUKAST SODIUM
     Dosage: 1 DF, 1X
     Dates: start: 202008, end: 202008
  10. LOSARTAN POTASSIUM. [Concomitant]
     Active Substance: LOSARTAN POTASSIUM
     Dosage: UNK MG
  11. PRILOSEC [Concomitant]
     Active Substance: OMEPRAZOLE MAGNESIUM
     Dosage: 20MG

REACTIONS (8)
  - Dermatitis [Unknown]
  - Gastrooesophageal reflux disease [Unknown]
  - Headache [Recovered/Resolved]
  - Feeling abnormal [Unknown]
  - Vomiting [Recovered/Resolved]
  - Insomnia [Recovered/Resolved]
  - Dysgeusia [Unknown]
  - Inappropriate schedule of product administration [Unknown]

NARRATIVE: CASE EVENT DATE: 2020
